FAERS Safety Report 8275273-8 (Version None)
Quarter: 2012Q2

REPORT INFORMATION
  Report Type: 
  Country: None (occurrence: None)
  Receive Date: 20120411
  Receipt Date: 20120406
  Transmission Date: 20120825
  Serious: Yes (Other)
  Sender: FDA-Public Use
  Company Number: US-PFIZER INC-2012087549

PATIENT
  Sex: Female
  Weight: 99.8 kg

DRUGS (1)
  1. EFFEXOR XR [Suspect]
     Indication: ANXIETY
     Dosage: 225 MG, 1X/DAY, ONE 75MG AND ONE 150MG ORAL CAPSULE
     Route: 048
     Dates: end: 20120404

REACTIONS (2)
  - DIZZINESS [None]
  - LEUKAEMIA [None]
